FAERS Safety Report 12319781 (Version 1)
Quarter: 2016Q2

REPORT INFORMATION
  Report Type: Spontaneous
  Country: US (occurrence: US)
  Receive Date: 20160429
  Receipt Date: 20160429
  Transmission Date: 20160815
  Serious: Yes (Hospitalization)
  Sender: FDA-Public Use
  Company Number: US-ROCHE-1549328

PATIENT
  Age: 66 Year
  Sex: Male
  Weight: 97.61 kg

DRUGS (4)
  1. AVASTIN [Suspect]
     Active Substance: BEVACIZUMAB
     Indication: COLON CANCER METASTATIC
     Dosage: LAST DOSE RECEIVED ON 14/JAN/2015.
     Route: 042
     Dates: start: 20141217
  2. LEUCOVORIN. [Concomitant]
     Active Substance: LEUCOVORIN
  3. OXALIPLATIN. [Concomitant]
     Active Substance: OXALIPLATIN
  4. FLUOROURACIL. [Concomitant]
     Active Substance: FLUOROURACIL

REACTIONS (4)
  - Gastrointestinal perforation [Recovering/Resolving]
  - Decreased appetite [Unknown]
  - Constipation [Unknown]
  - Abdominal pain [Unknown]

NARRATIVE: CASE EVENT DATE: 20150121
